FAERS Safety Report 21627128 (Version 2)
Quarter: 2022Q4

REPORT INFORMATION
  Report Type: Report from Study
  Country: US (occurrence: US)
  Receive Date: 20221122
  Receipt Date: 20221128
  Transmission Date: 20230113
  Serious: No
  Sender: FDA-Public Use
  Company Number: US-ABBVIE-4171718

PATIENT
  Age: 54 Year
  Sex: Female

DRUGS (1)
  1. HUMIRA [Suspect]
     Active Substance: ADALIMUMAB
     Indication: Rheumatoid arthritis
     Dosage: CITRATE FREE.?STRENGTH: 40 MG
     Route: 058
     Dates: start: 20221003, end: 20221112

REACTIONS (5)
  - Feeling abnormal [Unknown]
  - Migraine [Recovered/Resolved]
  - Vomiting [Unknown]
  - Migraine [Unknown]
  - Cough [Unknown]

NARRATIVE: CASE EVENT DATE: 20221018
